FAERS Safety Report 7811499-2 (Version None)
Quarter: 2011Q4

REPORT INFORMATION
  Report Type: 
  Country: None (occurrence: None)
  Receive Date: 20111013
  Receipt Date: 20111013
  Transmission Date: 20120403
  Serious: Yes (Other)
  Sender: FDA-Public Use
  Company Number: None

PATIENT
  Age: 52 Year
  Sex: Male
  Weight: 66.224 kg

DRUGS (1)
  1. ZOLPIDEM TARTRATE [Suspect]

REACTIONS (3)
  - NAUSEA [None]
  - HEADACHE [None]
  - PRODUCT CONTAMINATION PHYSICAL [None]
